FAERS Safety Report 20492968 (Version 1)
Quarter: 2022Q1

REPORT INFORMATION
  Report Type: Spontaneous
  Country: US (occurrence: US)
  Receive Date: 20220219
  Receipt Date: 20220219
  Transmission Date: 20220423
  Serious: No
  Sender: FDA-Public Use
  Company Number: US-JNJFOC-20220224416

PATIENT
  Age: 33 Year
  Sex: Female

DRUGS (1)
  1. WOMENS ROGAINE [Suspect]
     Active Substance: MINOXIDIL
     Indication: Alopecia
     Dosage: DOSE: APPLIED 1 ML OF PRODUCT DIRECTLY ON SCALP
     Route: 061
     Dates: start: 20210227

REACTIONS (1)
  - Drug ineffective [Unknown]
